FAERS Safety Report 25038149 (Version 1)
Quarter: 2025Q1

REPORT INFORMATION
  Report Type: Spontaneous
  Country: US (occurrence: US)
  Receive Date: 20250304
  Receipt Date: 20250304
  Transmission Date: 20250408
  Serious: No
  Sender: Haleon PLC
  Company Number: US-HALEON-2231179

PATIENT

DRUGS (3)
  1. SENSODYNE PRONAMEL CLINICAL ENAMEL STRENGTH DEEP CLEAN [Suspect]
     Active Substance: POTASSIUM NITRATE\SODIUM FLUORIDE
     Indication: Hyperaesthesia teeth
  2. SENSODYNE PRONAMEL CLINICAL ENAMEL STRENGTH DEEP CLEAN [Suspect]
     Active Substance: POTASSIUM NITRATE\SODIUM FLUORIDE
     Indication: Gingival disorder
  3. SENSODYNE PRONAMEL CLINICAL ENAMEL STRENGTH DEEP CLEAN [Suspect]
     Active Substance: POTASSIUM NITRATE\SODIUM FLUORIDE
     Indication: Tooth disorder

REACTIONS (1)
  - Therapeutic response unexpected [Unknown]
